FAERS Safety Report 21229984 (Version 3)
Quarter: 2022Q4

REPORT INFORMATION
  Report Type: Spontaneous
  Country: US (occurrence: US)
  Receive Date: 20220818
  Receipt Date: 20221110
  Transmission Date: 20230112
  Serious: Yes (Other)
  Sender: FDA-Public Use
  Company Number: US-SA-SAC20220813000090

PATIENT
  Age: 50 Year
  Sex: Female

DRUGS (1)
  1. KEVZARA [Suspect]
     Active Substance: SARILUMAB
     Indication: Rheumatoid arthritis
     Dosage: 200 MG, QOW
     Route: 058
     Dates: start: 20220421

REACTIONS (12)
  - Rheumatoid arthritis [Unknown]
  - Restlessness [Unknown]
  - Abnormal dreams [Unknown]
  - Blood pressure decreased [Unknown]
  - Fatigue [Unknown]
  - Urticaria [Unknown]
  - Lymphadenopathy [Unknown]
  - Pain [Unknown]
  - Oropharyngeal pain [Unknown]
  - Malaise [Unknown]
  - Skin irritation [Unknown]
  - Swelling [Unknown]

NARRATIVE: CASE EVENT DATE: 20220101
